FAERS Safety Report 6184227-7 (Version None)
Quarter: 2009Q2

REPORT INFORMATION
  Report Type: 
  Country: None (occurrence: None)
  Receive Date: 20090508
  Receipt Date: 20090429
  Transmission Date: 20091009
  Serious: Yes (Hospitalization)
  Sender: FDA-Public Use
  Company Number: PHHO2009AU03479

PATIENT
  Sex: Female

DRUGS (1)
  1. RAD 666 RAD+TAB+PTR [Suspect]
     Indication: RENAL TRANSPLANT
     Dosage: UNK
     Route: 048
     Dates: start: 20081226

REACTIONS (4)
  - C-REACTIVE PROTEIN INCREASED [None]
  - GASTROENTERITIS [None]
  - LOCALISED INTRAABDOMINAL FLUID COLLECTION [None]
  - RADIOGRAPHY GUIDED ASPIRATION [None]
